FAERS Safety Report 15676571 (Version 1)
Quarter: 2018Q4

REPORT INFORMATION
  Report Type: Spontaneous
  Country: US (occurrence: US)
  Receive Date: 20181130
  Receipt Date: 20181130
  Transmission Date: 20190205
  Serious: Yes (Other)
  Sender: FDA-Public Use
  Company Number: US-QILU PHARMACEUTICAL CO.LTD.-QLU-000878-2018

PATIENT
  Age: 58 Year
  Sex: Male

DRUGS (7)
  1. RIFAMPIN. [Concomitant]
     Active Substance: RIFAMPIN
     Indication: ENDOCARDITIS
     Dosage: UNK
     Route: 065
  2. GENTAMICINE [Concomitant]
     Active Substance: GENTAMICIN
     Indication: ENDOCARDITIS
     Dosage: UNK
     Route: 065
  3. AMPHOTERICIN B AND LIPOSOME [Suspect]
     Active Substance: AMPHOTERICIN B
     Dosage: 10 MG/KG, DAILY
     Route: 065
  4. CEFEPIME HYDROCHLORIDE. [Suspect]
     Active Substance: CEFEPIME HYDROCHLORIDE
     Indication: ENDOCARDITIS
     Dosage: UNK
     Route: 065
  5. VANCOMYCIN HYDROCHLORIDE. [Suspect]
     Active Substance: VANCOMYCIN HYDROCHLORIDE
     Indication: ENDOCARDITIS
     Dosage: UNK
     Route: 065
  6. AMPHOTERICIN B AND LIPOSOME [Suspect]
     Active Substance: AMPHOTERICIN B
     Indication: ENDOCARDITIS
     Dosage: 5 MG/KG, DAILY
     Route: 065
  7. VORICONAZOLE. [Concomitant]
     Active Substance: VORICONAZOLE
     Indication: ENDOCARDITIS
     Dosage: 4 MG/KG, BID
     Route: 042

REACTIONS (2)
  - Transaminases increased [Unknown]
  - Acute kidney injury [Recovering/Resolving]
